FAERS Safety Report 6952385-X (Version None)
Quarter: 2010Q3

REPORT INFORMATION
  Report Type: 
  Country: None (occurrence: None)
  Receive Date: 20100829
  Receipt Date: 20100521
  Transmission Date: 20110219
  Serious: No
  Sender: FDA-Public Use
  Company Number: US-ABBOTT-10P-163-0642675-00

PATIENT
  Sex: Female
  Weight: 124.4 kg

DRUGS (10)
  1. NIASPAN [Suspect]
     Indication: HYPERCHOLESTEROLAEMIA
     Route: 048
     Dates: start: 20100301, end: 20100427
  2. NIASPAN [Suspect]
     Route: 048
     Dates: start: 20100201, end: 20100301
  3. NIASPAN [Suspect]
     Route: 048
     Dates: start: 20100428
  4. COREG [Concomitant]
     Indication: HYPERTENSION
     Route: 048
  5. LISINOPRIL [Concomitant]
     Indication: HYPERTENSION
     Route: 048
  6. PLAVIX [Concomitant]
     Indication: MYOCARDIAL INFARCTION
     Route: 048
  7. HYDROCHLOROTHIAZIDE [Concomitant]
     Indication: DIURETIC THERAPY
     Route: 048
  8. TOPAMAX [Concomitant]
     Indication: MIGRAINE
     Route: 048
  9. LIPITOR [Concomitant]
     Indication: HYPERCHOLESTEROLAEMIA
     Route: 048
  10. ASPIRIN [Concomitant]
     Indication: CARDIAC DISORDER
     Route: 048

REACTIONS (5)
  - ERYTHEMA [None]
  - FLUSHING [None]
  - MIGRAINE [None]
  - SKIN BURNING SENSATION [None]
  - SLEEP DISORDER [None]
